FAERS Safety Report 19973260 (Version 1)
Quarter: 2021Q4

REPORT INFORMATION
  Report Type: Spontaneous
  Country: US (occurrence: US)
  Receive Date: 20211019
  Receipt Date: 20211019
  Transmission Date: 20220303
  Serious: No
  Sender: FDA-Public Use
  Company Number: None

PATIENT
  Sex: Female

DRUGS (1)
  1. HUMIRA [Suspect]
     Active Substance: ADALIMUMAB
     Indication: Psoriasis
     Dosage: ?          OTHER DOSE:40MG/0.4ML ;OTHER FREQUENCY:EVERY 14 DAYS;

REACTIONS (4)
  - Pruritus [None]
  - Pruritus [None]
  - Drug ineffective [None]
  - Surgery [None]
